FAERS Safety Report 22346681 (Version 1)
Quarter: 2023Q2

REPORT INFORMATION
  Report Type: Spontaneous
  Country: DE (occurrence: DE)
  Receive Date: 20230520
  Receipt Date: 20230520
  Transmission Date: 20230721
  Serious: Yes (Death, Hospitalization)
  Sender: FDA-Public Use
  Company Number: DE-ROCHE-3346839

PATIENT
  Age: 54 Year
  Sex: Female
  Weight: 45.8 kg

DRUGS (15)
  1. OXALIPLATIN [Suspect]
     Active Substance: OXALIPLATIN
     Indication: Neoplasm
     Dosage: 128 MG, BIW (DATE OF MOST RECENT DOSE OF OXALIPLATIN PRIOR TO AE/SAE ONSET: 07 SEP 2022)
     Route: 042
     Dates: start: 20220426, end: 20220711
  2. FLUOROURACIL [Suspect]
     Active Substance: FLUOROURACIL
     Indication: Neoplasm
     Dosage: 2880 MG (DATE OF MOST RECENT DOSE OF FLUOROURACIL PRIOR TO AE/SAE ONSET: 07 SEP 2022)
     Route: 042
     Dates: start: 20220426, end: 20220711
  3. IRINOTECAN [Suspect]
     Active Substance: IRINOTECAN
     Indication: Neoplasm
     Dosage: 216 MG, BIW (DATE OF MOST RECENT DOSE OF IRINOTECAN PRIOR TO AE/SAE ONSET: 07 SEP 2022)
     Route: 042
     Dates: start: 20220426, end: 20221107
  4. LEUCOVORIN [Suspect]
     Active Substance: LEUCOVORIN
     Indication: Neoplasm
     Dosage: 127.5 MG, BIW (DATE OF MOST RECENT DOSE OF CALCIUMFOLINAT PRIOR TO AE/SAE ONSET: 07 SEP 2022)
     Route: 042
     Dates: start: 20220426, end: 20221107
  5. PREDNISOLONE [Concomitant]
     Active Substance: PREDNISOLONE
     Indication: Product used for unknown indication
     Dosage: 100 MG
     Route: 065
  6. PREDNISOLONE [Concomitant]
     Active Substance: PREDNISOLONE
     Dosage: 150 MG
     Route: 065
     Dates: start: 20221112
  7. PREDNISOLONE [Concomitant]
     Active Substance: PREDNISOLONE
     Dosage: 100 MG
     Route: 065
     Dates: start: 20221113
  8. FUROSEMIDE [Concomitant]
     Active Substance: FUROSEMIDE
     Indication: Product used for unknown indication
     Dosage: 20 MG
     Route: 065
     Dates: start: 20221112
  9. FUROSEMIDE [Concomitant]
     Active Substance: FUROSEMIDE
     Dosage: 20 MG, QD
     Route: 065
     Dates: start: 20221113, end: 20221114
  10. TORSEMIDE [Concomitant]
     Active Substance: TORSEMIDE
     Indication: Product used for unknown indication
     Dosage: 5 MG
     Route: 065
     Dates: start: 20221111
  11. MORPHINE [Concomitant]
     Active Substance: MORPHINE
     Indication: Product used for unknown indication
     Dosage: 50 MG
     Route: 065
     Dates: start: 20221113
  12. BRICANYL [Concomitant]
     Active Substance: TERBUTALINE SULFATE
     Indication: Product used for unknown indication
     Dosage: 0.5 MG
     Route: 065
     Dates: start: 20221113
  13. SODIUM CHLORIDE [Concomitant]
     Active Substance: SODIUM CHLORIDE
     Indication: Product used for unknown indication
     Dosage: UNK (INHALATION WITH NACL 0.9%)
     Route: 065
     Dates: start: 20221111
  14. METAMIZOLE [Concomitant]
     Active Substance: METAMIZOLE
     Indication: Product used for unknown indication
     Dosage: 500 MG
     Route: 065
     Dates: start: 20221114
  15. AMPICILLIN [Concomitant]
     Active Substance: AMPICILLIN
     Indication: Product used for unknown indication
     Dosage: 2000 MG (2000MG/1000 MG)
     Route: 065
     Dates: start: 20221114

REACTIONS (1)
  - Respiratory failure [Fatal]

NARRATIVE: CASE EVENT DATE: 20221111
